FAERS Safety Report 8896371 (Version 1)
Quarter: 2012Q4

REPORT INFORMATION
  Report Type: Spontaneous
  Country: US (occurrence: None)
  Receive Date: 20121102
  Receipt Date: 20121102
  Transmission Date: 20130627
  Serious: No
  Sender: FDA-Public Use
  Company Number: 2012P1061208

PATIENT
  Age: 75 Year
  Sex: Female
  Weight: 58.06 kg

DRUGS (11)
  1. PHENOBARBITAL [Suspect]
     Indication: SEIZURE
     Route: 048
     Dates: start: 1992, end: 1995
  2. PHENOBARBITAL [Suspect]
     Indication: SEIZURE
     Dosage: 60 mg; hs; po
     Route: 048
     Dates: start: 1998, end: 2000
  3. PHENOBARBITAL [Suspect]
     Indication: SEIZURE
     Dosage: 90 mg; hs; po
     Route: 048
     Dates: start: 2000
  4. ARMOUR THYROID [Suspect]
  5. THYROID PREPARATIONS [Suspect]
  6. LEVOXYL [Suspect]
  7. ARMOUR THYROID [Suspect]
  8. THYROID PREPARATIONS [Suspect]
  9. VITAMIN [Suspect]
     Dates: start: 2005
  10. UNKNOWN PRODUCT [Suspect]
  11. UNKNOWN MEDICATIONS [Concomitant]

REACTIONS (22)
  - Convulsion [None]
  - Chest pain [None]
  - Drug dispensing error [None]
  - Wrong drug administered [None]
  - Drug hypersensitivity [None]
  - Foot fracture [None]
  - Stress [None]
  - Adverse drug reaction [None]
  - Headache [None]
  - Skin burning sensation [None]
  - Arthritis [None]
  - Deja vu [None]
  - Oral discomfort [None]
  - Product formulation issue [None]
  - Feeling abnormal [None]
  - Gait disturbance [None]
  - Dyspnoea [None]
  - Asthenopia [None]
  - Product compounding quality issue [None]
  - Agitation [None]
  - Abdominal distension [None]
  - Fatigue [None]
